FAERS Safety Report 7294896-6 (Version None)
Quarter: 2011Q1

REPORT INFORMATION
  Report Type: 
  Country: None (occurrence: None)
  Receive Date: 20110216
  Receipt Date: 20110202
  Transmission Date: 20110831
  Serious: Yes (Hospitalization, Other)
  Sender: FDA-Public Use
  Company Number: US-BAYER-201012020NA

PATIENT
  Sex: Female
  Weight: 91 kg

DRUGS (12)
  1. CLOTRIMAZOLE [Concomitant]
     Dosage: 1 %
     Dates: start: 20030604
  2. CEPHALEXIN [Concomitant]
     Route: 048
     Dates: start: 20030526
  3. IBUPROFEN [Concomitant]
     Route: 065
     Dates: start: 20030604
  4. OCELLA [Suspect]
     Indication: PRODUCT USED FOR UNKNOWN INDICATION
     Route: 048
  5. YASMIN [Suspect]
     Indication: ORAL CONTRACEPTION
     Route: 048
     Dates: start: 20030501, end: 20031201
  6. NAPROXEN SODIUM [Concomitant]
     Route: 048
     Dates: start: 20030526
  7. DOC-Q-LAX [Concomitant]
     Route: 048
     Dates: start: 20030526
  8. FERROUS SULFATE TAB [Concomitant]
     Route: 048
     Dates: start: 20030526
  9. ACETAMINOPHEN W/ CODEINE [Concomitant]
     Route: 048
     Dates: start: 20030711
  10. CEPHALEXIN [Concomitant]
     Route: 065
     Dates: start: 20030604
  11. PERCOCET [Concomitant]
     Dosage: 5MG/325MG
     Route: 065
     Dates: start: 20030816
  12. FAMOTIDINE [Concomitant]
     Route: 048
     Dates: start: 20030820

REACTIONS (9)
  - BILE DUCT STONE [None]
  - MURPHY'S SIGN POSITIVE [None]
  - GALLBLADDER ENLARGEMENT [None]
  - CHOLECYSTITIS CHRONIC [None]
  - BILIARY DILATATION [None]
  - CHOLECYSTITIS ACUTE [None]
  - ABDOMINAL PAIN UPPER [None]
  - VOMITING [None]
  - NAUSEA [None]
